FAERS Safety Report 11806784 (Version 1)
Quarter: 2015Q4

REPORT INFORMATION
  Report Type: Spontaneous
  Country: ES (occurrence: ES)
  Receive Date: 20151207
  Receipt Date: 20151207
  Transmission Date: 20160305
  Serious: Yes (Other)
  Sender: FDA-Public Use
  Company Number: ES-AKORN PHARMACEUTICALS-2015AKN00682

PATIENT
  Age: 70 Year
  Sex: Male

DRUGS (6)
  1. CLINDAMYCIN [Suspect]
     Active Substance: CLINDAMYCIN\CLINDAMYCIN PHOSPHATE
     Indication: EXTRADURAL ABSCESS
  2. BETALACTAM ANTIBIOTICS [Suspect]
     Active Substance: UNSPECIFIED INGREDIENT
     Indication: SEPTIC SHOCK
  3. ANTI-INFLAMMATORIES [Concomitant]
     Active Substance: UNSPECIFIED INGREDIENT
  4. BETALACTAM ANTIBIOTICS [Suspect]
     Active Substance: UNSPECIFIED INGREDIENT
     Indication: EXTRADURAL ABSCESS
  5. ANTIBIOTICS [Concomitant]
     Active Substance: UNSPECIFIED INGREDIENT
  6. CLINDAMYCIN [Suspect]
     Active Substance: CLINDAMYCIN\CLINDAMYCIN PHOSPHATE
     Indication: SEPTIC SHOCK
     Dosage: UNK

REACTIONS (2)
  - Toxic skin eruption [Recovered/Resolved]
  - Drug hypersensitivity [None]
